FAERS Safety Report 17876952 (Version 3)
Quarter: 2020Q2

REPORT INFORMATION
  Report Type: Spontaneous
  Country: IE (occurrence: IE)
  Receive Date: 20200609
  Receipt Date: 20200630
  Transmission Date: 20200714
  Serious: Yes (Hospitalization, Other)
  Sender: FDA-Public Use
  Company Number: IE-SA-2020SA145616

PATIENT

DRUGS (9)
  1. VENTOLIN [Concomitant]
     Active Substance: ALBUTEROL SULFATE
     Indication: ASTHMA
     Dosage: 90 UG, BID
     Route: 055
     Dates: start: 1986
  2. DUPILUMAB [Suspect]
     Active Substance: DUPILUMAB
     Dosage: 300 MG, QOW
     Route: 058
     Dates: start: 20191203, end: 20200310
  3. VALTREX [Concomitant]
     Active Substance: VALACYCLOVIR HYDROCHLORIDE
     Indication: HERPES SIMPLEX
     Dosage: 500 MG, QD
     Route: 048
     Dates: start: 20160516
  4. UPADACITINIB [Suspect]
     Active Substance: UPADACITINIB
     Indication: DERMATITIS ATOPIC
  5. LEKOVIT CA [Concomitant]
     Active Substance: CALCIUM CARBONATE\CHOLECALCIFEROL
     Indication: OSTEOPOROSIS
     Dosage: 1200 MG, BID ; 1200/800 MG (2 IN 1 D)
     Route: 048
     Dates: start: 20190117
  6. DUPILUMAB [Suspect]
     Active Substance: DUPILUMAB
     Dosage: 300 MG, QOW
     Route: 058
     Dates: start: 20200421
  7. RELVAR [Concomitant]
     Active Substance: FLUTICASONE FUROATE\VILANTEROL TRIFENATATE
     Indication: ASTHMA
     Dosage: UNK UNK, QOD ; (1 PUFF,1 IN 2 D)
     Route: 055
     Dates: start: 201801
  8. SPIRIVA [Concomitant]
     Active Substance: TIOTROPIUM BROMIDE MONOHYDRATE
     Indication: ASTHMA
     Dosage: UNK UNK, QOD ; (1 PUFF,1 IN 2 D)
     Route: 055
     Dates: start: 2018
  9. DUPILUMAB [Suspect]
     Active Substance: DUPILUMAB
     Indication: DERMATITIS ATOPIC
     Dosage: 600 MG, 1X
     Route: 058
     Dates: start: 20191119, end: 20191119

REACTIONS (13)
  - Cough [Unknown]
  - Infection [Recovered/Resolved]
  - Chest pain [Recovered/Resolved]
  - Headache [Unknown]
  - Hot flush [Unknown]
  - Nasopharyngitis [Unknown]
  - Pulmonary pain [Recovered/Resolved]
  - Pyrexia [Recovered/Resolved]
  - Respiratory tract infection [Not Recovered/Not Resolved]
  - Asthma [Recovered/Resolved]
  - Cough [Recovered/Resolved]
  - Myalgia [Unknown]
  - Dyspnoea [Recovered/Resolved]

NARRATIVE: CASE EVENT DATE: 202002
